FAERS Safety Report 25831656 (Version 1)
Quarter: 2025Q3

REPORT INFORMATION
  Report Type: Spontaneous
  Country: US (occurrence: None)
  Receive Date: 20250921
  Receipt Date: 20250921
  Transmission Date: 20251020
  Serious: Yes (Other)
  Sender: FDA-CTU
  Company Number: None

PATIENT
  Age: 78 Year
  Sex: Female
  Weight: 119.1 kg

DRUGS (1)
  1. DEFINITY [Suspect]
     Active Substance: PERFLUTREN
     Indication: Echocardiogram
     Route: 050
     Dates: start: 20250919, end: 20250919

REACTIONS (3)
  - Back pain [None]
  - Hot flush [None]
  - Contrast media reaction [None]

NARRATIVE: CASE EVENT DATE: 20250920
